FAERS Safety Report 18735862 (Version 1)
Quarter: 2021Q1

REPORT INFORMATION
  Report Type: Spontaneous
  Country: US (occurrence: US)
  Receive Date: 20210113
  Receipt Date: 20210113
  Transmission Date: 20210419
  Serious: No
  Sender: FDA-Public Use
  Company Number: US-SUN PHARMACEUTICAL INDUSTRIES LTD-2020R1-261185

PATIENT
  Sex: Male

DRUGS (1)
  1. IMATINIB. [Suspect]
     Active Substance: IMATINIB MESYLATE
     Indication: PRODUCT USED FOR UNKNOWN INDICATION
     Dosage: 37.5 MILLIGRAM, QD(4 WEEKS ON /2 WEEKS OFF)
     Route: 065

REACTIONS (6)
  - Nail disorder [Unknown]
  - Skin discolouration [Unknown]
  - Nail discolouration [Unknown]
  - Off label use [Unknown]
  - Product dose omission issue [Unknown]
  - Dizziness [Unknown]
